FAERS Safety Report 4383890-0 (Version None)
Quarter: 2004Q2

REPORT INFORMATION
  Report Type: 
  Country: None (occurrence: None)
  Receive Date: 20040617
  Receipt Date: 20040610
  Transmission Date: 20050107
  Serious: Yes (Hospitalization)
  Sender: FDA-Public Use
  Company Number: 2004218472ES

PATIENT
  Age: 83 Year
  Sex: Female

DRUGS (2)
  1. ALDACTONE [Suspect]
     Indication: ESSENTIAL HYPERTENSION
     Dosage: 25 MG, QD, ORAL
     Route: 048
     Dates: start: 20000101, end: 20040206
  2. RAMIPRIL [Suspect]
     Indication: ESSENTIAL HYPERTENSION
     Dosage: 2.5 MG, BID, ORAL
     Route: 048
     Dates: start: 20000101, end: 20040206

REACTIONS (3)
  - DRUG INTERACTION [None]
  - HYPERKALAEMIA [None]
  - RENAL FAILURE ACUTE [None]
